FAERS Safety Report 24726500 (Version 1)
Quarter: 2024Q4

REPORT INFORMATION
  Report Type: Spontaneous
  Country: US (occurrence: None)
  Receive Date: 20241211
  Receipt Date: 20241211
  Transmission Date: 20250114
  Serious: Yes (unspecified)
  Sender: Public
  Company Number: None

PATIENT
  Age: 54 Year
  Sex: Male
  Weight: 85 kg

DRUGS (1)
  1. TIXAGEVIMAB [Suspect]
     Active Substance: TIXAGEVIMAB
     Indication: Follicular lymphoma
     Route: 030
     Dates: start: 20220916, end: 20220916

REACTIONS (5)
  - Cough [None]
  - Dyspnoea [None]
  - Unresponsive to stimuli [None]
  - Immediate post-injection reaction [None]
  - Presyncope [None]

NARRATIVE: CASE EVENT DATE: 20220916
